FAERS Safety Report 18526895 (Version 1)
Quarter: 2020Q4

REPORT INFORMATION
  Report Type: Spontaneous
  Country: US (occurrence: US)
  Receive Date: 20201119
  Receipt Date: 20201119
  Transmission Date: 20210114
  Serious: Yes (Other)
  Sender: FDA-Public Use
  Company Number: None

PATIENT
  Age: 60 Year
  Sex: Male
  Weight: 122.47 kg

DRUGS (1)
  1. LEVOTHYROXINE 200MCG [Suspect]
     Active Substance: LEVOTHYROXINE
     Indication: HYPOTHYROIDISM
     Route: 048
     Dates: start: 20171005, end: 20171119

REACTIONS (2)
  - Palpitations [None]
  - Syncope [None]

NARRATIVE: CASE EVENT DATE: 20171119
